FAERS Safety Report 21121206 (Version 1)
Quarter: 2022Q3

REPORT INFORMATION
  Report Type: Spontaneous
  Country: US (occurrence: None)
  Receive Date: 20220722
  Receipt Date: 20220722
  Transmission Date: 20221026
  Serious: Yes (Other)
  Sender: FDA-Public Use
  Company Number: None

PATIENT
  Age: 41 Year
  Sex: Female

DRUGS (1)
  1. AJOVY [Suspect]
     Active Substance: FREMANEZUMAB-VFRM
     Indication: Migraine
     Dosage: OTHER QUANTITY : 225/1.5 MG/ML;?FREQUENCY : MONTHLY;?
     Route: 058
     Dates: start: 20211210, end: 20220722

REACTIONS (2)
  - Injection site rash [None]
  - Injection site erythema [None]

NARRATIVE: CASE EVENT DATE: 20211210
